FAERS Safety Report 21077735 (Version 3)
Quarter: 2023Q2

REPORT INFORMATION
  Report Type: Spontaneous
  Country: US (occurrence: US)
  Receive Date: 20220713
  Receipt Date: 20230613
  Transmission Date: 20230721
  Serious: Yes (Other)
  Sender: FDA-Public Use
  Company Number: US-TAKEDA-2022TUS046998

PATIENT
  Sex: Male
  Weight: 68.027 kg

DRUGS (2)
  1. LIVTENCITY [Suspect]
     Active Substance: MARIBAVIR
     Indication: Cytomegalovirus infection
     Dosage: 200 MILLIGRAM, BID
     Route: 065
     Dates: start: 20220208
  2. LIVTENCITY [Suspect]
     Active Substance: MARIBAVIR
     Dosage: 800 MILLIGRAM, QD
     Route: 065

REACTIONS (5)
  - Pneumonia [Unknown]
  - Dizziness [Unknown]
  - Asthenia [Unknown]
  - Haemoglobin decreased [Unknown]
  - Fatigue [Unknown]
